FAERS Safety Report 13415478 (Version 1)
Quarter: 2017Q2

REPORT INFORMATION
  Report Type: Spontaneous
  Country: US (occurrence: US)
  Receive Date: 20170407
  Receipt Date: 20170407
  Transmission Date: 20170830
  Serious: No
  Sender: FDA-Public Use
  Company Number: US-ALKERMES INC.-ALK-2017-000387

PATIENT
  Age: 24 Year
  Sex: Male
  Weight: 97.51 kg

DRUGS (1)
  1. ARISTADA [Suspect]
     Active Substance: ARIPIPRAZOLE LAUROXIL
     Indication: PRODUCT USED FOR UNKNOWN INDICATION
     Dosage: 882 MG, Q6WK
     Route: 030
     Dates: start: 2015

REACTIONS (6)
  - Injection site swelling [Not Recovered/Not Resolved]
  - Lack of injection site rotation [Unknown]
  - Drug administered at inappropriate site [Unknown]
  - Injection site pain [Not Recovered/Not Resolved]
  - Injection site warmth [Unknown]
  - Balance disorder [Unknown]

NARRATIVE: CASE EVENT DATE: 20170103
